FAERS Safety Report 9886085 (Version 1)
Quarter: 2014Q1

REPORT INFORMATION
  Report Type: Spontaneous
  Country: US (occurrence: None)
  Receive Date: 20140207
  Receipt Date: 20140207
  Transmission Date: 20141002
  Serious: Yes (Hospitalization)
  Sender: FDA-Public Use
  Company Number: None

PATIENT
  Age: 83 Year
  Sex: Female
  Weight: 56.25 kg

DRUGS (1)
  1. OXYTROL [Suspect]
     Indication: BLADDER DISORDER
     Dates: start: 20131211, end: 20131214

REACTIONS (1)
  - Pericarditis [None]
